FAERS Safety Report 15849804 (Version 1)
Quarter: 2019Q1

REPORT INFORMATION
  Report Type: Spontaneous
  Country: US (occurrence: US)
  Receive Date: 20190121
  Receipt Date: 20190121
  Transmission Date: 20190417
  Serious: Yes (Disabling, Other)
  Sender: FDA-Public Use
  Company Number: US-RISING PHARMACEUTICALS, INC.-2019RIS00015

PATIENT
  Sex: Male
  Weight: 74.83 kg

DRUGS (4)
  1. ACETAZOLAMIDE (NON-COMPANY) [Suspect]
     Active Substance: ACETAZOLAMIDE
     Indication: PROSTATITIS
     Dosage: UNK
     Dates: start: 201705
  2. ADDERALL [Concomitant]
     Active Substance: AMPHETAMINE ASPARTATE\AMPHETAMINE SULFATE\DEXTROAMPHETAMINE SACCHARATE\DEXTROAMPHETAMINE SULFATE
     Dosage: UNK, AS NEEDED DURING SCHOOL
  3. CIPROFLOXACIN. [Suspect]
     Active Substance: CIPROFLOXACIN
     Indication: EPIDIDYMITIS
     Dosage: 500 MG, 2X/DAY
     Route: 048
     Dates: start: 20170527, end: 20170604
  4. LYRICA [Concomitant]
     Active Substance: PREGABALIN

REACTIONS (19)
  - Pain in extremity [Not Recovered/Not Resolved]
  - Muscle injury [Not Recovered/Not Resolved]
  - Pelvic pain [Not Recovered/Not Resolved]
  - Weight decreased [Not Recovered/Not Resolved]
  - Impaired work ability [Not Recovered/Not Resolved]
  - Head discomfort [Not Recovered/Not Resolved]
  - Insomnia [Not Recovered/Not Resolved]
  - Memory impairment [Not Recovered/Not Resolved]
  - Pain [Not Recovered/Not Resolved]
  - Cognitive disorder [Not Recovered/Not Resolved]
  - Nephrolithiasis [Not Recovered/Not Resolved]
  - Tendon injury [Not Recovered/Not Resolved]
  - Headache [Not Recovered/Not Resolved]
  - Neuropathy peripheral [Not Recovered/Not Resolved]
  - Brain injury [Not Recovered/Not Resolved]
  - Idiopathic intracranial hypertension [Not Recovered/Not Resolved]
  - Anxiety [Not Recovered/Not Resolved]
  - Diplopia [Not Recovered/Not Resolved]
  - Arthralgia [Not Recovered/Not Resolved]
